FAERS Safety Report 23564728 (Version 1)
Quarter: 2024Q1

REPORT INFORMATION
  Report Type: Spontaneous
  Country: HN (occurrence: HN)
  Receive Date: 20240226
  Receipt Date: 20240226
  Transmission Date: 20240409
  Serious: No
  Sender: FDA-Public Use
  Company Number: HN-PFIZER INC-PV202300195224

PATIENT
  Age: 11 Year
  Sex: Male

DRUGS (1)
  1. GENOTROPIN [Suspect]
     Active Substance: SOMATROPIN
     Dosage: 0.8 MG IN THREE DAYS, AND 0.7 MG IN FOUR DAYS

REACTIONS (2)
  - Device breakage [Unknown]
  - Wrong technique in device usage process [Unknown]
